FAERS Safety Report 5022177-X (Version None)
Quarter: 2006Q2

REPORT INFORMATION
  Report Type: 
  Country: None (occurrence: None)
  Receive Date: 20060605
  Receipt Date: 20060523
  Transmission Date: 20061013
  Serious: Yes (Hospitalization)
  Sender: FDA-Public Use
  Company Number: 2006067735

PATIENT
  Age: 64 Year
  Sex: Male
  Weight: 51 kg

DRUGS (13)
  1. SILDENAFIL CITRATE [Suspect]
     Indication: PULMONARY EMBOLISM
     Dosage: 50 MG (25 MG, 2 IN 1 D), ORAL
     Route: 048
     Dates: start: 20020508, end: 20021002
  2. WARFARIN (WARFARIN) [Concomitant]
  3. BERAPROST (BERAPROST) [Concomitant]
  4. LASIX [Concomitant]
  5. TORSEMIDE [Concomitant]
  6. TICLOPIDINE HCL [Concomitant]
  7. MECOBALAMIN (MECOBALAMIN) [Concomitant]
  8. DIART (AZOSEMIDE) [Concomitant]
  9. ASPIRIN [Concomitant]
  10. URINORM (BENZBROMARONE) [Concomitant]
  11. HARNAL (TAMSULOSIN HYDROCHLORIDE) [Concomitant]
  12. GANATON (ITOPRIDE HYDROCHLORIDE) [Concomitant]
  13. TANADOPA (DOCARPAMINE) [Concomitant]

REACTIONS (3)
  - CARDIAC FAILURE [None]
  - CONDITION AGGRAVATED [None]
  - DRUG INEFFECTIVE [None]
